FAERS Safety Report 12774278 (Version 7)
Quarter: 2017Q1

REPORT INFORMATION
  Report Type: Spontaneous
  Country: US (occurrence: US)
  Receive Date: 20160923
  Receipt Date: 20170302
  Transmission Date: 20170428
  Serious: No
  Sender: FDA-Public Use
  Company Number: US-PFIZER INC-2016442996

PATIENT
  Age: 62 Year
  Sex: Female

DRUGS (21)
  1. LYRICA [Suspect]
     Active Substance: PREGABALIN
     Indication: FIBROMYALGIA
     Dosage: 75 MG, 2X/DAY
     Route: 048
     Dates: start: 20161004
  2. SYNTHROID [Concomitant]
     Active Substance: LEVOTHYROXINE SODIUM
     Dosage: 50 UG, DAILY (TAKE 1 TAB DAILY BEFORE BREAKFAST)
     Route: 048
     Dates: start: 20160802
  3. HUMALOG [Concomitant]
     Active Substance: INSULIN LISPRO
     Dosage: 4 DF, 3X/DAY (INJECT 4 UNITS THREE TIMES A DAY WITH MEALS)
     Route: 058
     Dates: start: 20150121
  4. LYRICA [Suspect]
     Active Substance: PREGABALIN
     Dosage: 1 TABLET A DAY
     Route: 048
  5. ZANAFLEX [Concomitant]
     Active Substance: TIZANIDINE HYDROCHLORIDE
     Dosage: 4 MG, TAKE 1-2 TABS HS
     Dates: start: 20160928
  6. CYMBALTA [Concomitant]
     Active Substance: DULOXETINE HYDROCHLORIDE
     Dosage: 120 MG, DAILY (TAKE 2 CAPS DAILY)
     Route: 048
     Dates: start: 20160802
  7. DULOXETINE. [Suspect]
     Active Substance: DULOXETINE
     Indication: FIBROMYALGIA
     Dosage: 120 MG, 1X/DAY (60 MG TAKE 2 ONCE A DAY)
  8. DULOXETINE. [Suspect]
     Active Substance: DULOXETINE
     Dosage: 60 MG, UNK
     Dates: start: 20140114
  9. ALBUTEROL. [Concomitant]
     Active Substance: ALBUTEROL
     Indication: DYSPNOEA
     Dosage: 2 DF, AS NEEDED (INHALE 2 PUFFS AS DIRECTED EVERY 4 HRS AS NEEDED) (90MCG/ ACTUATION)
     Route: 045
     Dates: start: 20160802
  10. PREDNISONE. [Concomitant]
     Active Substance: PREDNISONE
     Dosage: 5 MG, DAILY (TAKE 1 TAB DAILY)
     Route: 048
     Dates: start: 20160802
  11. LYRICA [Suspect]
     Active Substance: PREGABALIN
     Dosage: 75 MG, 2X/DAY
     Route: 048
     Dates: start: 20161125
  12. LIPITOR [Concomitant]
     Active Substance: ATORVASTATIN CALCIUM
     Dosage: 40 MG, DAILY
     Route: 048
     Dates: start: 20140908
  13. LYRICA [Suspect]
     Active Substance: PREGABALIN
     Dosage: 75 MG, 2X/DAY
  14. ZESTORETIC [Concomitant]
     Active Substance: HYDROCHLOROTHIAZIDE\LISINOPRIL
     Dosage: 1 DF, UNK ([LISINOPRIL: 10MG]/ [HYDROCHLOROTHIAZIDE: 12.5MG])
     Route: 048
  15. NORCO [Concomitant]
     Active Substance: ACETAMINOPHEN\HYDROCODONE BITARTRATE
     Dosage: 5-325 MG TABLET 1-2 TABS BY MOUTH EVERY 4 HOURS AS NEEDED
     Route: 048
     Dates: start: 20160728
  16. LEVOTHROID [Concomitant]
     Active Substance: LEVOTHYROXINE SODIUM
     Dosage: 50 UG, DAILY (TAKE 1 TAB DAILY BEFORE BREAKFAST)
     Route: 048
     Dates: start: 20160802
  17. LANTUS SOLOSTAR [Concomitant]
     Active Substance: INSULIN GLARGINE
     Dosage: 1X/DAY (100 UNIT/ML) (INJECT 60 UNITS AT BEDTIME) (3ML)
     Route: 058
     Dates: start: 20160727
  18. OSCAL [Concomitant]
     Active Substance: CALCIUM CARBONATE
     Dosage: 500 MG, UNK
     Route: 048
  19. PROVENTIL [Concomitant]
     Active Substance: ALBUTEROL
     Dosage: 3 ML, AS NEEDED (2.5MG/3ML) (INHALE 3ML AS DIRECTED EVERY 4HRS AS NEEDED)
     Route: 045
     Dates: start: 20160802
  20. LEVOTHYROXINE. [Concomitant]
     Active Substance: LEVOTHYROXINE
     Dosage: UNK
     Dates: start: 19740824
  21. LISINOPRIL AND HYDROCHLOROTHIAZIDE [Concomitant]
     Active Substance: HYDROCHLOROTHIAZIDE\LISINOPRIL
     Dosage: UNK
     Dates: start: 19730607

REACTIONS (7)
  - Withdrawal syndrome [Recovered/Resolved]
  - Gait disturbance [Recovered/Resolved]
  - Intentional product use issue [Recovered/Resolved]
  - Asthenia [Recovered/Resolved]
  - Pain [Unknown]
  - Insomnia [Recovered/Resolved]
  - Tremor [Recovered/Resolved]
